FAERS Safety Report 9312230 (Version 1)
Quarter: 2013Q2

REPORT INFORMATION
  Report Type: Spontaneous
  Country: US (occurrence: US)
  Receive Date: 20130528
  Receipt Date: 20130528
  Transmission Date: 20140414
  Serious: No
  Sender: FDA-Public Use
  Company Number: US-MYLANLABS-2013S1008405

PATIENT
  Age: 27 Year
  Sex: Male

DRUGS (5)
  1. MONTELUKAST SODIUM [Suspect]
     Indication: SEASONAL ALLERGY
     Dates: start: 20130318, end: 20130401
  2. MONTELUKAST SODIUM [Suspect]
     Indication: SEASONAL ALLERGY
     Dates: start: 20130318, end: 20130401
  3. LEVOTHYROXINE [Concomitant]
  4. MULTIVITAMIN [Concomitant]
  5. VITAMIN D [Concomitant]

REACTIONS (3)
  - Drug ineffective [Recovered/Resolved]
  - Asthma [Recovered/Resolved]
  - Allergic sinusitis [Recovered/Resolved]
